FAERS Safety Report 5429725-6 (Version None)
Quarter: 2007Q3

REPORT INFORMATION
  Report Type: 
  Country: None (occurrence: None)
  Receive Date: 20070829
  Receipt Date: 20070817
  Transmission Date: 20080115
  Serious: Yes (Other)
  Sender: FDA-Public Use
  Company Number: PHEH2007US11262

PATIENT
  Age: 70 Year
  Sex: Female

DRUGS (2)
  1. LOTREL [Suspect]
     Route: 048
  2. ATENOLOL [Concomitant]

REACTIONS (3)
  - BLOOD CHOLESTEROL INCREASED [None]
  - BLOOD PRESSURE INADEQUATELY CONTROLLED [None]
  - DEPRESSION [None]
